FAERS Safety Report 7584042 (Version 8)
Quarter: 2018Q4

REPORT INFORMATION
  Report Type: Spontaneous
  Country: JP (occurrence: JP)
  Receive Date: 20100914
  Receipt Date: 20181220
  Transmission Date: 20190205
  Serious: Yes (Hospitalization, Other)
  Sender: FDA-Public Use
  Company Number: PHHY2010JP58071

PATIENT
  Sex: Male

DRUGS (6)
  1. GLIVEC [Suspect]
     Active Substance: IMATINIB MESYLATE
     Indication: CHRONIC MYELOID LEUKAEMIA
     Dosage: 300 MG, UNK
     Route: 048
  2. FUROSEMIDE. [Concomitant]
     Active Substance: FUROSEMIDE
     Indication: PRODUCT USED FOR UNKNOWN INDICATION
     Dosage: 20 MG, QD
     Route: 065
  3. GLIVEC [Suspect]
     Active Substance: IMATINIB MESYLATE
     Dosage: 400 MG, UNK
     Route: 048
  4. GLIVEC [Suspect]
     Active Substance: IMATINIB MESYLATE
     Dosage: UNK
     Route: 048
  5. CANDESARTAN. [Concomitant]
     Active Substance: CANDESARTAN
     Indication: PRODUCT USED FOR UNKNOWN INDICATION
     Dosage: 8 MG, QD
     Route: 065
  6. NIFEDIPINE. [Concomitant]
     Active Substance: NIFEDIPINE
     Indication: PRODUCT USED FOR UNKNOWN INDICATION
     Dosage: 40 MG, BID
     Route: 065

REACTIONS (22)
  - Lung infiltration [Unknown]
  - Cell marker increased [Unknown]
  - Dyspnoea [Unknown]
  - Antinuclear antibody positive [Unknown]
  - Pulmonary toxicity [Unknown]
  - Cough [Recovering/Resolving]
  - Computerised tomogram abnormal [Unknown]
  - Bronchial polyp [Unknown]
  - Alveolitis [Unknown]
  - Surfactant protein increased [Recovering/Resolving]
  - Pneumonitis [Unknown]
  - Lung disorder [Recovering/Resolving]
  - CD4/CD8 ratio decreased [Unknown]
  - Pulmonary eosinophilia [Unknown]
  - Pyrexia [Recovering/Resolving]
  - Anaemia [Unknown]
  - Pulmonary granuloma [Unknown]
  - Malaise [Unknown]
  - Antinuclear antibody increased [Unknown]
  - Respiratory failure [Unknown]
  - Pulmonary mass [Unknown]
  - Rales [Recovered/Resolved]

NARRATIVE: CASE EVENT DATE: 200909
